FAERS Safety Report 9825223 (Version 1)
Quarter: 2014Q1

REPORT INFORMATION
  Report Type: Spontaneous
  Country: CA (occurrence: CA)
  Receive Date: 20140117
  Receipt Date: 20140117
  Transmission Date: 20141002
  Serious: Yes (Other)
  Sender: FDA-Public Use
  Company Number: CA-ROCHE-1334718

PATIENT
  Age: 87 Year
  Sex: Female

DRUGS (9)
  1. LUCENTIS [Suspect]
     Indication: DIABETIC RETINAL OEDEMA
     Dosage: 0.5 MG/ML
     Route: 050
     Dates: start: 20100318
  2. LUCENTIS [Suspect]
     Dosage: 0.5 MG/ML
     Route: 050
     Dates: start: 20110324
  3. NORVASC [Concomitant]
  4. SYNTHROID [Concomitant]
  5. AMLODIPINE [Concomitant]
  6. DIAZEPAM [Concomitant]
     Route: 065
  7. NITRODERM [Concomitant]
  8. CELEBREX [Concomitant]
  9. ARGININE ASPARTATE [Concomitant]

REACTIONS (1)
  - Blood pressure increased [Recovered/Resolved]
